FAERS Safety Report 22606475 (Version 1)
Quarter: 2023Q2

REPORT INFORMATION
  Report Type: Spontaneous
  Country: US (occurrence: None)
  Receive Date: 20230606
  Receipt Date: 20230606
  Transmission Date: 20230721
  Serious: Yes (Death)
  Sender: FDA-Public Use
  Company Number: None

PATIENT
  Age: 65 Year
  Sex: Male
  Weight: 63.2 kg

DRUGS (1)
  1. TREPROSTINIL [Suspect]
     Active Substance: TREPROSTINIL
     Indication: Pulmonary arterial hypertension

REACTIONS (7)
  - Hypoxia [None]
  - Condition aggravated [None]
  - Hypothermia [None]
  - Lung infiltration [None]
  - Pulmonary oedema [None]
  - Brain natriuretic peptide increased [None]
  - Physical deconditioning [None]

NARRATIVE: CASE EVENT DATE: 20230509
